FAERS Safety Report 15861374 (Version 2)
Quarter: 2019Q1

REPORT INFORMATION
  Report Type: Spontaneous
  Country: BR (occurrence: BR)
  Receive Date: 20190124
  Receipt Date: 20190228
  Transmission Date: 20190417
  Serious: Yes (Hospitalization, Other)
  Sender: FDA-Public Use
  Company Number: BR-AMGEN-BRASP2019004825

PATIENT
  Sex: Male

DRUGS (3)
  1. ENBREL [Suspect]
     Active Substance: ETANERCEPT
     Dosage: 25 MG, WEEKLY (1 APPLICATION OF 25 MG PER ONCE WEEK)
     Route: 065
     Dates: start: 20190110
  2. ENBREL [Suspect]
     Active Substance: ETANERCEPT
     Dosage: 25 MG, WEEKLY (1 APPLICATION OF 25 MG PER ONCE WEEK)
     Route: 065
     Dates: start: 201807, end: 2018
  3. ENBREL [Suspect]
     Active Substance: ETANERCEPT
     Indication: PSORIASIS
     Dosage: 2 APPLICATIONS OF 25 MG PER WEEK
     Route: 065
     Dates: start: 2005, end: 201805

REACTIONS (3)
  - Diabetes mellitus [Not Recovered/Not Resolved]
  - Intentional product misuse [Not Recovered/Not Resolved]
  - Prostatic disorder [Recovered/Resolved]

NARRATIVE: CASE EVENT DATE: 201806
